FAERS Safety Report 5170101-1 (Version None)
Quarter: 2006Q4

REPORT INFORMATION
  Report Type: 
  Country: None (occurrence: None)
  Receive Date: 20061201
  Receipt Date: 20061016
  Transmission Date: 20070319
  Serious: Yes (Hospitalization)
  Sender: FDA-Public Use
  Company Number: SPI200600140

PATIENT
  Age: 80 Year
  Sex: Male

DRUGS (10)
  1. AMITIZA [Suspect]
     Dosage: 24 MCG, UNK, ORAL
     Route: 048
     Dates: start: 20060905
  2. ZESTORETIC [Concomitant]
  3. ZOCOR [Concomitant]
  4. CELEBREX [Concomitant]
  5. NEXIUM [Concomitant]
  6. GLUCOSAMINE W/CHONDROITIN SULFATE (CHONDROITIN SULFATE, GLUCOSAMINE) [Concomitant]
  7. MULTIVITAMINS (ASCORBIC ACID, ERGOCALCIFEROL, FOLIC ACID, NICOTINAMIDE [Concomitant]
  8. COLACE (DOCUSATE SODIUM) [Concomitant]
  9. VITAMIN E            /00110501/(TOCOPHEROL) [Concomitant]
  10. ACIDOPHILUS (LACTOBACILLUS ACIDOPHILUS) [Concomitant]

REACTIONS (2)
  - BLOOD CHLORIDE DECREASED [None]
  - HYPONATRAEMIA [None]
